FAERS Safety Report 18690545 (Version 2)
Quarter: 2021Q1

REPORT INFORMATION
  Report Type: Spontaneous
  Country: IT (occurrence: IT)
  Receive Date: 20210101
  Receipt Date: 20210111
  Transmission Date: 20210419
  Serious: Yes (Hospitalization, Other)
  Sender: FDA-Public Use
  Company Number: IT-AUROBINDO-AUR-APL-2020-063100

PATIENT
  Age: 62 Year
  Sex: Male

DRUGS (2)
  1. PRAMIPEXOLE. [Suspect]
     Active Substance: PRAMIPEXOLE
     Indication: PARKINSON^S DISEASE
     Dosage: UNK UP TO 2.1 MG, DAILY
     Route: 065
  2. PRAMIPEXOLE. [Suspect]
     Active Substance: PRAMIPEXOLE
     Dosage: 2.1 MILLIGRAM, ONCE A DAY
     Route: 065

REACTIONS (3)
  - Confusional state [Recovered/Resolved]
  - Balance disorder [Recovered/Resolved]
  - Inappropriate antidiuretic hormone secretion [Recovered/Resolved]
